FAERS Safety Report 7582119 (Version 3)
Quarter: 2013Q2

REPORT INFORMATION
  Report Type: Report from Study
  Country: GR (occurrence: GR)
  Receive Date: 20100913
  Receipt Date: 20130523
  Transmission Date: 20140414
  Serious: Yes (Hospitalization)
  Sender: FDA-Public Use
  Company Number: PHHY2010GR57452

PATIENT
  Age: 33 Year
  Sex: Female
  Weight: 70 kg

DRUGS (4)
  1. ZOLEDRONATE [Suspect]
     Dosage: UNK UKN, UNK
     Route: 042
     Dates: start: 20100721, end: 20100813
  2. METHOTREXATE [Concomitant]
     Indication: METASTASES TO MENINGES
     Dosage: 12.5 UKN, UNK
     Dates: start: 20100713, end: 20100726
  3. TAXOTERE [Concomitant]
     Indication: METASTASES TO LIVER
     Dosage: 130 MG, UNK
     Dates: start: 20100721, end: 20100813
  4. BEVACIZUMAB [Concomitant]
     Indication: METASTASES TO LIVER
     Dosage: 1000 MG, UNK
     Dates: start: 20100721, end: 20100813

REACTIONS (2)
  - Febrile neutropenia [Recovered/Resolved]
  - Septic shock [Recovered/Resolved with Sequelae]
